FAERS Safety Report 9558563 (Version 4)
Quarter: 2013Q4

REPORT INFORMATION
  Report Type: Spontaneous
  Country: JP (occurrence: JP)
  Receive Date: 20130926
  Receipt Date: 20131214
  Transmission Date: 20140711
  Serious: Yes (Hospitalization, Other)
  Sender: FDA-Public Use
  Company Number: JP-009507513-1309JPN011855

PATIENT
  Age: 19 Year
  Sex: Female
  Weight: 54 kg

DRUGS (10)
  1. GASTER [Suspect]
     Indication: PROPHYLAXIS AGAINST GASTROINTESTINAL ULCER
     Dosage: 40 MG, UID/QD
     Route: 041
     Dates: start: 20130624, end: 20130628
  2. GASTER D [Suspect]
     Indication: PROPHYLAXIS AGAINST GASTROINTESTINAL ULCER
     Dosage: 20 MG, BID
     Route: 048
     Dates: start: 20130628, end: 20130723
  3. VICCILIN [Suspect]
     Indication: ENDOCARDITIS
     Dosage: UNK
     Route: 041
     Dates: start: 20130710, end: 20130720
  4. VICCILIN [Suspect]
     Dosage: UNK
     Route: 041
     Dates: start: 20130625, end: 20130708
  5. PENICILLIN G POTASSIUM [Concomitant]
     Indication: ENDOCARDITIS
     Dosage: UNK
     Dates: start: 20130708, end: 20130710
  6. GENTAMICIN SULFATE [Concomitant]
     Indication: ENDOCARDITIS
     Dosage: UNK
  7. LASIX (FUROSEMIDE SODIUM) [Concomitant]
     Indication: CONGESTIVE CARDIOMYOPATHY
     Dosage: UNK
     Route: 048
  8. ALDACTONE A [Concomitant]
     Indication: CONGESTIVE CARDIOMYOPATHY
     Dosage: UNK
     Route: 048
  9. RENIVACE [Concomitant]
     Indication: CONGESTIVE CARDIOMYOPATHY
     Dosage: UNK
     Route: 048
  10. DIGOSIN [Concomitant]
     Indication: CONGESTIVE CARDIOMYOPATHY
     Dosage: UNK
     Route: 048

REACTIONS (2)
  - Erythema multiforme [Recovered/Resolved]
  - Off label use [Unknown]
